FAERS Safety Report 8954370 (Version 1)
Quarter: 2012Q4

REPORT INFORMATION
  Report Type: 
  Country: US (occurrence: US)
  Receive Date: 20121207
  Receipt Date: 20121207
  Transmission Date: 20130627
  Serious: Yes (Other)
  Sender: FDA-Public Use
  Company Number: US-AMGEN-USASP2012078623

PATIENT
  Sex: Female

DRUGS (7)
  1. NEULASTA [Suspect]
     Indication: PRODUCT USED FOR UNKNOWN INDICATION
     Dosage: UNK
  2. RITUXAN [Concomitant]
     Dosage: UNK
     Dates: start: 20121120
  3. ADRIAMYCIN                         /00330901/ [Concomitant]
     Dosage: UNK
     Dates: start: 20121120
  4. VINCRISTINE [Concomitant]
     Dosage: UNK
     Dates: start: 20121120
  5. CISPLATIN [Concomitant]
     Dosage: UNK
     Dates: start: 20121120
  6. PREDNISONE [Concomitant]
     Dosage: UNK
     Dates: start: 20121120
  7. CHEMOTHERAPEUTICS [Concomitant]
     Dosage: UNK

REACTIONS (2)
  - Febrile neutropenia [Unknown]
  - Drug ineffective [Unknown]
